FAERS Safety Report 19019320 (Version 1)
Quarter: 2021Q1

REPORT INFORMATION
  Report Type: Spontaneous
  Country: JP (occurrence: JP)
  Receive Date: 20210316
  Receipt Date: 20210316
  Transmission Date: 20210420
  Serious: Yes (Other)
  Sender: FDA-Public Use
  Company Number: JP-ELI_LILLY_AND_COMPANY-JP201810010445

PATIENT
  Age: 90 Year
  Sex: Female
  Weight: 42 kg

DRUGS (2)
  1. DULOXETINE HYDROCHLORIDE. [Suspect]
     Active Substance: DULOXETINE HYDROCHLORIDE
     Indication: DEPRESSION
     Dosage: 20 MG, EACH MORNING
     Route: 048
  2. DULOXETINE HYDROCHLORIDE. [Suspect]
     Active Substance: DULOXETINE HYDROCHLORIDE
     Indication: PAIN

REACTIONS (1)
  - Renal impairment [Unknown]
